FAERS Safety Report 18169867 (Version 1)
Quarter: 2020Q3

REPORT INFORMATION
  Report Type: Spontaneous
  Country: CA (occurrence: CA)
  Receive Date: 20200819
  Receipt Date: 20200819
  Transmission Date: 20201103
  Serious: Yes (Life-Threatening)
  Sender: FDA-Public Use
  Company Number: CA-ACCORD-195828

PATIENT
  Age: 12 Year
  Sex: Male
  Weight: 45 kg

DRUGS (20)
  1. DIPHENHYDRAMINE. [Concomitant]
     Active Substance: DIPHENHYDRAMINE
  2. NYSTATIN/NYSTATIN/LIPOSOME [Concomitant]
     Active Substance: NYSTATIN
  3. EMEND [Concomitant]
     Active Substance: APREPITANT
  4. FILGRASTIM [Concomitant]
     Active Substance: FILGRASTIM
  5. METOCLOPRAMIDE. [Concomitant]
     Active Substance: METOCLOPRAMIDE
  6. OLANZAPINE. [Concomitant]
     Active Substance: OLANZAPINE
  7. SULFAMETHOXAZOLE/TRIMETHOPRIM [Concomitant]
     Active Substance: SULFAMETHOXAZOLE\TRIMETHOPRIM
  8. DEXAMETHASONE. [Concomitant]
     Active Substance: DEXAMETHASONE
     Dosage: DOSAGE FORM: LIQUID INTRA? ARTICULAR
  9. LORAZEPAM. [Concomitant]
     Active Substance: LORAZEPAM
  10. MAGNESIUM [Concomitant]
     Active Substance: MAGNESIUM
  11. ONDANSETRON [Concomitant]
     Active Substance: ONDANSETRON
  12. MACROGOL [Concomitant]
     Active Substance: POLYETHYLENE GLYCOLS
  13. DOXORUBICIN [Suspect]
     Active Substance: DOXORUBICIN
     Indication: OSTEOSARCOMA
     Dosage: DOXORUBICIN HYDROCHLORIDE INJECTION
     Route: 042
  14. RANITIDINE. [Concomitant]
     Active Substance: RANITIDINE
  15. CISPLATIN. [Suspect]
     Active Substance: CISPLATIN
     Indication: OSTEOSARCOMA
     Dosage: CISPLATIN INJECTION
     Route: 042
  16. PARACETAMOL [Concomitant]
     Active Substance: ACETAMINOPHEN
  17. HYDROMORPHONE/HYDROMORPHONE HYDROCHLORIDE [Concomitant]
     Active Substance: HYDROMORPHONE
  18. DIMENHYDRINATE. [Concomitant]
     Active Substance: DIMENHYDRINATE
     Dosage: DOSAGE FORM: LIQUID INTRAVENOUS
  19. HEPARIN [Concomitant]
     Active Substance: HEPARIN SODIUM
  20. DOCUSATE [Concomitant]
     Active Substance: DOCUSATE

REACTIONS (4)
  - Hypomagnesaemia [Recovered/Resolved]
  - Hypokalaemia [Recovered/Resolved]
  - Hypophosphataemia [Recovered/Resolved]
  - Aplastic anaemia [Recovered/Resolved]
